FAERS Safety Report 4639126-6 (Version None)
Quarter: 2005Q2

REPORT INFORMATION
  Report Type: 
  Country: None (occurrence: None)
  Receive Date: 20050419
  Receipt Date: 20050404
  Transmission Date: 20051028
  Serious: Yes (Hospitalization)
  Sender: FDA-Public Use
  Company Number: US-GLAXOSMITHKLINE-A0552538A

PATIENT
  Age: 63 Year
  Sex: Female
  Weight: 57 kg

DRUGS (10)
  1. COMMIT [Suspect]
     Dosage: 4MG TWELVE TIMES PER DAY
     Dates: start: 20040512
  2. CARDIZEM [Concomitant]
     Indication: BLOOD PRESSURE
     Dosage: 120MG PER DAY
     Route: 048
     Dates: start: 20050208
  3. DILTIAZEM [Concomitant]
     Indication: BLOOD PRESSURE
     Dosage: 100MG PER DAY
     Route: 048
  4. ATENOLOL [Concomitant]
     Indication: BLOOD PRESSURE
     Dosage: 25MG TWICE PER DAY
     Route: 048
  5. LISINOPRIL [Concomitant]
     Indication: BLOOD PRESSURE
     Dosage: 20MG PER DAY
     Route: 048
     Dates: start: 20050214
  6. PREVACID [Concomitant]
     Dosage: 30MG PER DAY
     Route: 048
     Dates: start: 20050301
  7. VICODIN [Concomitant]
     Indication: ARTHRITIS
     Route: 048
  8. METHADONE HCL [Concomitant]
     Indication: PAIN
     Dosage: 15MG AS REQUIRED
  9. ROBAXIN [Concomitant]
     Indication: PAIN
     Dosage: 1500MG AS REQUIRED
     Route: 048
  10. PAIN MEDICATION [Concomitant]
     Indication: SLEEP DISORDER

REACTIONS (4)
  - ABDOMINAL PAIN [None]
  - CHEST DISCOMFORT [None]
  - DYSPNOEA [None]
  - HEART RATE INCREASED [None]
